FAERS Safety Report 7367375-5 (Version None)
Quarter: 2011Q1

REPORT INFORMATION
  Report Type: 
  Country: None (occurrence: None)
  Receive Date: 20110322
  Receipt Date: 20110317
  Transmission Date: 20110831
  Serious: Yes (Hospitalization)
  Sender: FDA-Public Use
  Company Number: US-BRISTOL-MYERS SQUIBB COMPANY-15615149

PATIENT
  Age: 8 Decade
  Sex: Female

DRUGS (9)
  1. COUMADIN [Suspect]
     Indication: HEART RATE IRREGULAR
  2. ASPIRIN [Concomitant]
  3. DILTIAZEM HCL [Concomitant]
  4. METFORMIN [Concomitant]
  5. VITAMIN E [Concomitant]
  6. VITAMIN D [Concomitant]
  7. METOPROLOL [Concomitant]
     Dosage: METOPROLOL SUCCER
  8. DIOVAN HCT [Concomitant]
     Dosage: 1DF:160/25MG
  9. ACTOS [Concomitant]

REACTIONS (3)
  - NASOPHARYNGITIS [None]
  - COUGH [None]
  - HEPATIC STEATOSIS [None]
